FAERS Safety Report 12311143 (Version 1)
Quarter: 2016Q2

REPORT INFORMATION
  Report Type: Report from Study
  Country: DK (occurrence: DK)
  Receive Date: 20160427
  Receipt Date: 20160427
  Transmission Date: 20160815
  Serious: Yes (Other)
  Sender: FDA-Public Use
  Company Number: DK-SA-2016SA076732

PATIENT
  Age: 68 Year
  Sex: Female

DRUGS (25)
  1. FORMOTEROL [Concomitant]
     Active Substance: FORMOTEROL
     Indication: ASTHMA
     Dosage: 12 UG, UNK?ROUTE: RESPIRATORY
     Dates: start: 20130909
  2. PANODIL [Concomitant]
     Active Substance: ACETAMINOPHEN
     Indication: HEADACHE
     Dosage: 1 G, UNK
     Route: 048
     Dates: start: 20150614
  3. POTASSIUM [Concomitant]
     Active Substance: POTASSIUM
  4. 5-FU [Suspect]
     Active Substance: FLUOROURACIL
     Indication: BREAST CANCER
     Dosage: 800 MG, UNK
     Route: 042
     Dates: start: 20150714
  5. EPIRUBICIN [Suspect]
     Active Substance: EPIRUBICIN
     Indication: BREAST CANCER
     Dosage: 165 MG, UNK
     Route: 042
     Dates: start: 20150714
  6. IBUPROFEN. [Concomitant]
     Active Substance: IBUPROFEN
     Indication: HEADACHE
     Dosage: 400 MG, UNK
     Route: 048
     Dates: start: 20150614
  7. MONTELUKAST [Concomitant]
     Active Substance: MONTELUKAST SODIUM
     Indication: ASTHMA
     Dosage: 10 MG, UNK
     Route: 048
     Dates: start: 20130527
  8. 5-FU [Suspect]
     Active Substance: FLUOROURACIL
     Indication: BREAST CANCER
     Dosage: 500 MG/M2, UNK
     Route: 042
     Dates: start: 20150511
  9. CYCLOPHOSPHAMIDE. [Suspect]
     Active Substance: CYCLOPHOSPHAMIDE
     Indication: BREAST CANCER
     Dosage: 1000 MG, UNK
     Route: 042
     Dates: start: 20150714
  10. PERTUZUMAB [Suspect]
     Active Substance: PERTUZUMAB
     Indication: BREAST CANCER
     Dosage: 840 MG, EVERY 3 WEEKS
     Route: 042
     Dates: start: 20150804
  11. TRASTUZUMAB [Suspect]
     Active Substance: TRASTUZUMAB
     Indication: BREAST CANCER
     Dosage: 8 MG/KG, ONCE EVERY 3 WEEKS
     Route: 042
     Dates: start: 20150804
  12. TRASTUZUMAB [Suspect]
     Active Substance: TRASTUZUMAB
     Indication: BREAST CANCER
     Dosage: 345 MG, ONCE EVERY 3 WEEKS
     Route: 042
     Dates: end: 20160113
  13. PANTOPRAZOLE [Concomitant]
     Active Substance: PANTOPRAZOLE SODIUM
     Indication: GASTROOESOPHAGEAL REFLUX DISEASE
     Dosage: 40 MG, UNK
     Route: 048
     Dates: start: 20130506
  14. CYCLOPHOSPHAMIDE. [Suspect]
     Active Substance: CYCLOPHOSPHAMIDE
     Indication: BREAST CANCER
     Dosage: 600 MG/M2, UNK
     Route: 042
     Dates: start: 20150511
  15. BUVENTOL [Concomitant]
     Indication: ASTHMA
     Dosage: 200 UG, UNK?ROUTE: RESPIRATORY
     Dates: start: 20130508
  16. GIONA [Concomitant]
     Indication: ASTHMA
     Dosage: 400 UG, UNK?RESPIRATORY ROUTE
     Dates: start: 20130909
  17. EPIRUBICIN [Suspect]
     Active Substance: EPIRUBICIN
     Indication: BREAST CANCER
     Dosage: 100 MG/M2 ONCE IN EVERY THREE WEEKS
     Route: 042
     Dates: start: 20150511
  18. CETIRIZINE [Concomitant]
     Active Substance: CETIRIZINE HYDROCHLORIDE
     Indication: RASH
     Dosage: 10 MG, UNK
     Route: 048
     Dates: start: 20151116
  19. OMEPRAZOLE. [Concomitant]
     Active Substance: OMEPRAZOLE
     Indication: ABDOMINAL PAIN UPPER
     Dosage: 40 L, UNK
     Route: 048
     Dates: start: 20150914
  20. ACIVIR [Concomitant]
     Active Substance: ACYCLOVIR
     Dosage: 50 MG, UNK
     Route: 061
     Dates: start: 20150617
  21. HYPOLOC [Concomitant]
     Indication: HYPERTENSION
     Dosage: 7.5 MG, UNK
     Route: 048
  22. IMODIUM [Concomitant]
     Active Substance: LOPERAMIDE HYDROCHLORIDE
     Indication: DIARRHOEA
     Dosage: 2 MG, UNK
     Dates: start: 20150812
  23. SOFRADEX [Concomitant]
     Active Substance: DEXAMETHASONE\FRAMYCETIN SULFATE\GRAMICIDIN
     Dosage: 0.5 UNK, UNK
     Dates: start: 20150617
  24. DOCETAXEL. [Suspect]
     Active Substance: DOCETAXEL
     Indication: BREAST CANCER
     Dosage: 123 MG, EVERY WEEK
     Route: 065
     Dates: start: 20150804, end: 20150804
  25. PERTUZUMAB [Suspect]
     Active Substance: PERTUZUMAB
     Indication: BREAST CANCER
     Dosage: 420 MG, EVERY 3 WEEKS
     Route: 042
     Dates: end: 20160113

REACTIONS (1)
  - Cardiac failure [Unknown]

NARRATIVE: CASE EVENT DATE: 20160115
